FAERS Safety Report 4362497-5 (Version None)
Quarter: 2004Q2

REPORT INFORMATION
  Report Type: 
  Country: None (occurrence: None)
  Receive Date: 20040521
  Receipt Date: 20040511
  Transmission Date: 20050107
  Serious: Yes (Other)
  Sender: FDA-Public Use
  Company Number: PHEH2004US05203

PATIENT
  Age: 45 Year
  Sex: Female

DRUGS (3)
  1. ZELNORM [Suspect]
     Indication: IRRITABLE BOWEL SYNDROME
     Dosage: 6 MG, BID
     Route: 048
     Dates: start: 20020101
  2. ZELNORM [Suspect]
     Dosage: 6 MG, BID
     Route: 048
     Dates: start: 20040101
  3. SINUS MEDICATION [Concomitant]

REACTIONS (5)
  - CHEST PAIN [None]
  - CHOLECYSTECTOMY [None]
  - DYSPNOEA [None]
  - GALLBLADDER DISORDER [None]
  - NAUSEA [None]
